FAERS Safety Report 18854736 (Version 1)
Quarter: 2021Q1

REPORT INFORMATION
  Report Type: Report from Study
  Country: TR (occurrence: TR)
  Receive Date: 20210205
  Receipt Date: 20210205
  Transmission Date: 20210420
  Serious: Yes (Hospitalization, Other)
  Sender: FDA-Public Use
  Company Number: TR-JNJFOC-20210208467

PATIENT

DRUGS (4)
  1. REMICADE [Suspect]
     Active Substance: INFLIXIMAB
     Indication: JUVENILE IDIOPATHIC ARTHRITIS
     Route: 042
  2. ETANERCEPT [Suspect]
     Active Substance: ETANERCEPT
     Indication: JUVENILE IDIOPATHIC ARTHRITIS
     Route: 065
  3. ADALIMUMAB [Suspect]
     Active Substance: ADALIMUMAB
     Indication: JUVENILE IDIOPATHIC ARTHRITIS
     Route: 065
  4. METHOTREXATE. [Concomitant]
     Active Substance: METHOTREXATE
     Indication: JUVENILE IDIOPATHIC ARTHRITIS
     Route: 065

REACTIONS (12)
  - Pneumonia [Unknown]
  - Rash erythematous [Unknown]
  - Thrombocytopenia [Unknown]
  - Oral herpes [Unknown]
  - Impetigo [Unknown]
  - Sepsis [Unknown]
  - Urinary tract infection [Unknown]
  - Injection site reaction [Unknown]
  - Liver function test increased [Unknown]
  - Upper respiratory tract infection [Unknown]
  - Abscess [Unknown]
  - Lymphopenia [Unknown]
